FAERS Safety Report 8337515-X (Version None)
Quarter: 2012Q2

REPORT INFORMATION
  Report Type: 
  Country: None (occurrence: None)
  Receive Date: 20120504
  Receipt Date: 20120419
  Transmission Date: 20120825
  Serious: Yes (Hospitalization)
  Sender: FDA-Public Use
  Company Number: ES-ROCHE-1064557

PATIENT
  Age: 73 Year
  Sex: Female

DRUGS (15)
  1. IBUPROFEN [Suspect]
     Indication: RESPIRATORY TRACT INFECTION
     Route: 048
     Dates: start: 20110725, end: 20110730
  2. ACETAMINOPHEN [Concomitant]
  3. BUPREX [Concomitant]
  4. METHOTREXATE SODIUM [Concomitant]
  5. DUPHALAC [Concomitant]
  6. ATENOLOL [Concomitant]
     Indication: HYPERTENSION
     Dates: start: 20110401, end: 20110731
  7. SIMVASTATIN [Concomitant]
  8. LEUCOVORIN CALCIUM [Concomitant]
  9. CLONAZEPAM [Concomitant]
  10. TORSEMIDE [Suspect]
     Indication: PRODUCT USED FOR UNKNOWN INDICATION
     Dosage: DRUG NAME REPORTED AS SUTRIL
     Route: 048
     Dates: end: 20110731
  11. TARKA [Suspect]
     Indication: HYPERTENSION
     Route: 048
     Dates: end: 20110731
  12. ATACAND [Suspect]
     Indication: HYPERTENSION
     Route: 048
     Dates: start: 20110201, end: 20110731
  13. BUPRENORPHINE [Concomitant]
  14. OMEPRAZOLE [Concomitant]
  15. AMOXICILLIN [Concomitant]
     Indication: RESPIRATORY TRACT INFECTION
     Dates: start: 20110725, end: 20110731

REACTIONS (2)
  - HYPERKALAEMIA [None]
  - RENAL FAILURE ACUTE [None]
